FAERS Safety Report 19982610 (Version 1)
Quarter: 2021Q4

REPORT INFORMATION
  Report Type: Spontaneous
  Country: US (occurrence: US)
  Receive Date: 20211022
  Receipt Date: 20211022
  Transmission Date: 20220303
  Serious: No
  Sender: FDA-Public Use
  Company Number: US-BAUSCH-BL-2021-034471

PATIENT
  Age: 75 Year
  Sex: Female

DRUGS (2)
  1. BESIVANCE [Suspect]
     Active Substance: BESIFLOXACIN
     Indication: Ulcerative keratitis
     Dosage: 1 GTT EVERY 30 MINUTES FOR THE 1ST 3 HOURS, THEN 1 GTT EVERY HOUR
     Route: 047
     Dates: start: 20211008, end: 20211010
  2. BESIVANCE [Suspect]
     Active Substance: BESIFLOXACIN
     Indication: Conjunctivitis

REACTIONS (5)
  - Instillation site discharge [Recovered/Resolved]
  - Drug hypersensitivity [Recovered/Resolved]
  - Off label use [Unknown]
  - Product delivery mechanism issue [Unknown]
  - Product packaging quantity issue [Unknown]

NARRATIVE: CASE EVENT DATE: 20211001
